FAERS Safety Report 5419102-6 (Version None)
Quarter: 2007Q3

REPORT INFORMATION
  Report Type: 
  Country: None (occurrence: None)
  Receive Date: 20070820
  Receipt Date: 20070807
  Transmission Date: 20080115
  Serious: Yes (Life-Threatening, Hospitalization)
  Sender: FDA-Public Use
  Company Number: DE-ELI_LILLY_AND_COMPANY-DE200708001558

PATIENT
  Age: 29 Year
  Sex: Female
  Weight: 73 kg

DRUGS (2)
  1. ZYPREXA [Suspect]
     Indication: TRICHOTILLOMANIA
     Dosage: 7.5 MG, DAILY (1/D)
     Route: 048
     Dates: start: 20050301, end: 20060401
  2. PAROXAT [Concomitant]
     Indication: DEPRESSION
     Dosage: 40 MG, DAILY (1/D)
     Route: 048
     Dates: start: 20060101, end: 20060215

REACTIONS (1)
  - VOLVULUS [None]
